FAERS Safety Report 15659057 (Version 1)
Quarter: 2018Q4

REPORT INFORMATION
  Report Type: Report from Study
  Country: US (occurrence: US)
  Receive Date: 20181127
  Receipt Date: 20181127
  Transmission Date: 20190205
  Serious: Yes (Hospitalization)
  Sender: FDA-Public Use
  Company Number: US-SA-2018SA319206

PATIENT
  Age: 53 Year
  Sex: Male

DRUGS (1)
  1. INSULIN GLARGINE [Suspect]
     Active Substance: INSULIN GLARGINE
     Indication: TYPE 2 DIABETES MELLITUS
     Dosage: 20 U, HS
     Route: 058

REACTIONS (8)
  - Weight decreased [Recovered/Resolved]
  - Osteomyelitis [Recovered/Resolved]
  - Circulatory collapse [Recovered/Resolved]
  - Localised infection [Recovered/Resolved]
  - Amnesia [Recovered/Resolved]
  - Atypical pneumonia [Recovered/Resolved]
  - Renal disorder [Recovered/Resolved]
  - Infection [Recovered/Resolved]
